FAERS Safety Report 20603813 (Version 1)
Quarter: 2022Q1

REPORT INFORMATION
  Report Type: Spontaneous
  Country: US (occurrence: None)
  Receive Date: 20220316
  Receipt Date: 20220316
  Transmission Date: 20220423
  Serious: Yes (Hospitalization)
  Sender: FDA-Public Use
  Company Number: None

PATIENT
  Age: 67 Year
  Sex: Female

DRUGS (1)
  1. CAPECITABINE [Suspect]
     Active Substance: CAPECITABINE
     Indication: Bile duct cancer
     Dosage: OTHER FREQUENCY : 1500AM/2000 PM M-F;?
     Route: 048
     Dates: start: 202202

REACTIONS (2)
  - Infection [None]
  - Stent placement [None]

NARRATIVE: CASE EVENT DATE: 20220209
